FAERS Safety Report 8707258 (Version 2)
Quarter: 2013Q4

REPORT INFORMATION
  Report Type: Spontaneous
  Country: US (occurrence: US)
  Receive Date: 20120803
  Receipt Date: 20131105
  Transmission Date: 20140711
  Serious: Yes (Hospitalization, Other)
  Sender: FDA-Public Use
  Company Number: US-009507513-1207USA010945

PATIENT
  Age: 63 Year
  Sex: Male

DRUGS (3)
  1. ZOCOR [Suspect]
     Route: 048
  2. ITRACONAZOLE [Suspect]
     Dosage: 100 MG, BID
     Route: 048
  3. CORTICOSTEROIDS (UNSPECIFIED) [Concomitant]

REACTIONS (3)
  - Blood creatine phosphokinase increased [Unknown]
  - Asthenia [Unknown]
  - Drug interaction [Unknown]
